FAERS Safety Report 21880989 (Version 1)
Quarter: 2023Q1

REPORT INFORMATION
  Report Type: Report from Study
  Country: IR (occurrence: IR)
  Receive Date: 20230118
  Receipt Date: 20230118
  Transmission Date: 20230418
  Serious: Yes (Other)
  Sender: FDA-Public Use
  Company Number: IR-GILEAD-2023-0613193

PATIENT
  Age: 27 Year
  Sex: Female
  Weight: 82 kg

DRUGS (8)
  1. REMDESIVIR [Suspect]
     Active Substance: REMDESIVIR
     Indication: COVID-19
     Route: 065
  2. DEXAMETHASONE [Concomitant]
     Active Substance: DEXAMETHASONE
  3. INTERFERON [Concomitant]
     Active Substance: INTERFERON
  4. HYDROCORTISONE [Concomitant]
     Active Substance: HYDROCORTISONE
  5. ENOXAPARIN SODIUM [Concomitant]
     Active Substance: ENOXAPARIN SODIUM
  6. PIPERACILLIN SODIUM\TAZOBACTAM SODIUM [Concomitant]
     Active Substance: PIPERACILLIN SODIUM\TAZOBACTAM SODIUM
  7. VANCOMYCIN [Concomitant]
     Active Substance: VANCOMYCIN
  8. MEROPENEM [Concomitant]
     Active Substance: MEROPENEM

REACTIONS (1)
  - Premature delivery [Recovered/Resolved]
